FAERS Safety Report 11422770 (Version 3)
Quarter: 2015Q4

REPORT INFORMATION
  Report Type: Report from Study
  Country: US (occurrence: US)
  Receive Date: 20150827
  Receipt Date: 20151019
  Transmission Date: 20160304
  Serious: No
  Sender: FDA-Public Use
  Company Number: US-AMGEN-USASP2015086591

PATIENT
  Age: 50 Year
  Sex: Female

DRUGS (2)
  1. COLCRYS [Concomitant]
     Active Substance: COLCHICINE
     Dosage: UNK
  2. ENBREL [Suspect]
     Active Substance: ETANERCEPT
     Indication: PSORIATIC ARTHROPATHY
     Dosage: 50 MG, EVERY WEEK
     Route: 058
     Dates: start: 201508

REACTIONS (3)
  - Injection site erythema [Unknown]
  - Cystitis [Unknown]
  - Malaise [Unknown]

NARRATIVE: CASE EVENT DATE: 2015
